FAERS Safety Report 22343618 (Version 3)
Quarter: 2023Q4

REPORT INFORMATION
  Report Type: Other
  Country: CA (occurrence: None)
  Receive Date: 20230519
  Receipt Date: 20231215
  Transmission Date: 20240109
  Serious: No
  Sender: FDA-Public Use
  Company Number: CA-ROCHE-3104723

PATIENT
  Age: 52 Year
  Sex: Female

DRUGS (20)
  1. OCREVUS [Suspect]
     Active Substance: OCRELIZUMAB
     Indication: Primary progressive multiple sclerosis
     Dosage: 300 MG AT DAY 0 AND 14, THEN 600 MG EVERY 6 MONTH
     Route: 042
     Dates: start: 20220520
  2. PREDNISONE [Suspect]
     Active Substance: PREDNISONE
     Indication: Product used for unknown indication
     Dosage: DAILY
     Route: 065
     Dates: start: 20220520
  3. ACETAMINOPHEN\OXYCODONE HYDROCHLORIDE [Concomitant]
     Active Substance: ACETAMINOPHEN\OXYCODONE HYDROCHLORIDE
     Dosage: 325/5MG
  4. AMITRIPTYLINE [Concomitant]
     Active Substance: AMITRIPTYLINE
     Dosage: DAILY
  5. CYCLOBENZAPRINE [Concomitant]
     Active Substance: CYCLOBENZAPRINE
     Dosage: DAILY
  6. ZOPICLONE [Concomitant]
     Active Substance: ZOPICLONE
     Dosage: 7.6 DAILY
  7. ESTRACE [Concomitant]
     Active Substance: ESTRADIOL
     Dosage: AT BEDTIME
  8. PROMETRIUM [Concomitant]
     Active Substance: PROGESTERONE
     Dosage: AT BEDTIME
  9. PANTOPRAZOLE [Concomitant]
     Active Substance: PANTOPRAZOLE
  10. SYNTHROID [Concomitant]
     Active Substance: LEVOTHYROXINE SODIUM
     Dosage: DAILY
  11. ZOFRAN [Concomitant]
     Active Substance: ONDANSETRON HYDROCHLORIDE
  12. LYSINE [Concomitant]
     Active Substance: LYSINE
  13. VITAMIN C [Concomitant]
     Active Substance: ASCORBIC ACID
  14. GABA (CANADA) [Concomitant]
  15. MACROBID [Concomitant]
     Active Substance: NITROFURANTOIN\NITROFURANTOIN MONOHYDRATE
     Indication: Urinary tract infection
  16. NITROFURANTOIN [Concomitant]
     Active Substance: NITROFURANTOIN
     Dosage: FOR 5 DAYS
     Dates: start: 20230430
  17. BACLOFEN [Concomitant]
     Active Substance: BACLOFEN
  18. VALTREX [Concomitant]
     Active Substance: VALACYCLOVIR HYDROCHLORIDE
     Indication: Oral herpes
  19. VAGIFEM [Concomitant]
     Active Substance: ESTRADIOL
     Dosage: VAGINAL INSERT
  20. BETAHISTINE [Concomitant]
     Active Substance: BETAHISTINE
     Indication: Vertigo
     Dosage: AS NEEDED

REACTIONS (13)
  - Vomiting [Not Recovered/Not Resolved]
  - Headache [Not Recovered/Not Resolved]
  - Infusion related reaction [Unknown]
  - Vertigo [Unknown]
  - Retching [Unknown]
  - Injection site nerve damage [Recovered/Resolved]
  - Poor venous access [Unknown]
  - Diarrhoea [Recovered/Resolved]
  - Depression [Unknown]
  - Amnesia [Not Recovered/Not Resolved]
  - Oral herpes [Unknown]
  - Stress [Unknown]
  - Cystitis [Recovering/Resolving]

NARRATIVE: CASE EVENT DATE: 20221221
